FAERS Safety Report 6539968-6 (Version None)
Quarter: 2010Q1

REPORT INFORMATION
  Report Type: 
  Country: None (occurrence: None)
  Receive Date: 20100115
  Receipt Date: 20100104
  Transmission Date: 20100710
  Serious: Yes (Other)
  Sender: FDA-Public Use
  Company Number: PHHY2010MX00515

PATIENT
  Sex: Female

DRUGS (2)
  1. TRILEPTAL [Suspect]
     Indication: EPILEPSY
     Dosage: 300 MG, 2 TABLETS DAILY
     Dates: start: 20091101
  2. CRIAN [Concomitant]
     Indication: CONVULSION
     Dosage: UNK,UNK

REACTIONS (4)
  - DYSPNOEA [None]
  - LIP DISCOLOURATION [None]
  - MUSCLE RIGIDITY [None]
  - MUSCULOSKELETAL STIFFNESS [None]
